FAERS Safety Report 4480873-7 (Version None)
Quarter: 2004Q4

REPORT INFORMATION
  Report Type: 
  Country: None (occurrence: None)
  Receive Date: 20040923
  Receipt Date: 20040707
  Transmission Date: 20050328
  Serious: No
  Sender: FDA-Public Use
  Company Number: USA030741902

PATIENT
  Age: 74 Year
  Sex: Female
  Weight: 59 kg

DRUGS (10)
  1. FORTEO [Suspect]
     Indication: OSTEOPOROSIS
     Dosage: 20 UG DAY
     Dates: start: 20030621
  2. CENTRUM PERFORMACNE MUILTIVITAMIN [Concomitant]
  3. GLUCOSAMINE/MSM WITH JOINT COMFORT HERBS [Concomitant]
  4. CALCIUM PLUS D [Concomitant]
  5. THYROID TAB [Concomitant]
  6. ACIPHEX [Concomitant]
  7. ZOMIG [Concomitant]
  8. PRILOSEC [Concomitant]
  9. VITAMIN E [Concomitant]
  10. METAMUCIL-2 [Concomitant]

REACTIONS (4)
  - FAT TISSUE INCREASED [None]
  - MIDDLE INSOMNIA [None]
  - NIGHT CRAMPS [None]
  - WEIGHT DECREASED [None]
